FAERS Safety Report 5155236-1 (Version None)
Quarter: 2006Q4

REPORT INFORMATION
  Report Type: 
  Country: None (occurrence: None)
  Receive Date: 20061121
  Receipt Date: 20061110
  Transmission Date: 20070319
  Serious: Yes (Death)
  Sender: FDA-Public Use
  Company Number: US-KINGPHARMUSA00001-K200601469

PATIENT
  Age: 22 Year

DRUGS (1)
  1. MORPHINE SULFATE [Suspect]

REACTIONS (2)
  - CARDIO-RESPIRATORY ARREST [None]
  - UNEVALUABLE EVENT [None]
